FAERS Safety Report 24172608 (Version 1)
Quarter: 2024Q3

REPORT INFORMATION
  Report Type: Report from Study
  Country: MX (occurrence: None)
  Receive Date: 20240805
  Receipt Date: 20240805
  Transmission Date: 20241017
  Serious: Yes (Other)
  Sender: ASTRAZENECA
  Company Number: 2020SF66520

PATIENT
  Age: 73 Year
  Sex: Male

DRUGS (1)
  1. IRESSA [Suspect]
     Active Substance: GEFITINIB
     Dosage: 250.0MG UNKNOWN
     Route: 048
     Dates: end: 20201208

REACTIONS (3)
  - Acquired gene mutation [Unknown]
  - Pulmonary mass [Unknown]
  - Lung neoplasm [Unknown]
